FAERS Safety Report 9657044 (Version 1)
Quarter: 2013Q4

REPORT INFORMATION
  Report Type: Spontaneous
  Country: ES (occurrence: ES)
  Receive Date: 20131030
  Receipt Date: 20131030
  Transmission Date: 20140711
  Serious: Yes (Other)
  Sender: FDA-Public Use
  Company Number: PHHY2013ES119816

PATIENT
  Age: 28 Year
  Sex: Female

DRUGS (2)
  1. AMOXICILLIN [Suspect]
     Indication: BRONCHITIS
     Dosage: 1 DF, Q8H
  2. AMOXICILLIN [Suspect]
     Dosage: 25, 50, 150 MG (CUMULATIVE, 225 MG)

REACTIONS (6)
  - Generalised erythema [Recovered/Resolved]
  - Pruritus [Recovered/Resolved]
  - Rash maculo-papular [Recovered/Resolved]
  - Angioedema [Unknown]
  - Pruritus generalised [Unknown]
  - Erythema [Unknown]
